FAERS Safety Report 5527022-1 (Version None)
Quarter: 2007Q4

REPORT INFORMATION
  Report Type: 
  Country: None (occurrence: None)
  Receive Date: 20071127
  Receipt Date: 20071116
  Transmission Date: 20080405
  Serious: Yes (Hospitalization)
  Sender: FDA-Public Use
  Company Number: FR-ELI_LILLY_AND_COMPANY-FR200711003734

PATIENT
  Age: 78 Year
  Sex: Male
  Weight: 62 kg

DRUGS (8)
  1. PROZAC [Suspect]
     Indication: DEPRESSION
     Dosage: 20 MG, DAILY (1/D)
     Route: 048
     Dates: start: 20071002
  2. PREVISCAN [Interacting]
     Indication: ATRIAL FIBRILLATION
     Dosage: 20 MG, DAILY (1/D)
     Route: 048
     Dates: start: 20070927, end: 20071005
  3. NOROXIN [Interacting]
     Indication: URINARY TRACT INFECTION
     Dosage: 400 MG, DAILY (1/D)
     Route: 048
     Dates: start: 20071003
  4. CARVEDILOL [Concomitant]
     Dosage: UNK, UNKNOWN
     Route: 065
  5. TAHOR [Concomitant]
     Dosage: UNK, UNKNOWN
     Route: 065
  6. INEXIUM [Concomitant]
     Dosage: UNK, UNKNOWN
     Route: 065
  7. LASIX [Concomitant]
     Dosage: UNK, UNKNOWN
     Route: 065
  8. OXAZEPAM [Concomitant]
     Dosage: UNK, UNKNOWN
     Route: 065

REACTIONS (2)
  - DRUG INTERACTION [None]
  - INTERNATIONAL NORMALISED RATIO INCREASED [None]
